FAERS Safety Report 5083340-5 (Version None)
Quarter: 2006Q3

REPORT INFORMATION
  Report Type: 
  Country: None (occurrence: None)
  Receive Date: 20060818
  Receipt Date: 20060811
  Transmission Date: 20061208
  Serious: Yes (Other)
  Sender: FDA-Public Use
  Company Number: FR-AVENTIS-200612818FR

PATIENT
  Age: 51 Year
  Sex: Male

DRUGS (1)
  1. LOVENOX [Suspect]
     Route: 058
     Dates: start: 20060726, end: 20060807

REACTIONS (1)
  - THROMBOCYTHAEMIA [None]
